FAERS Safety Report 17816955 (Version 1)
Quarter: 2020Q2

REPORT INFORMATION
  Report Type: Spontaneous
  Country: PL (occurrence: PL)
  Receive Date: 20200522
  Receipt Date: 20200522
  Transmission Date: 20200714
  Serious: Yes (Other)
  Sender: FDA-Public Use
  Company Number: PL-PFIZER INC-2020198630

PATIENT
  Age: 57 Year
  Sex: Female
  Weight: 67 kg

DRUGS (4)
  1. COLISTIN TZF [Suspect]
     Active Substance: COLISTIMETHATE SODIUM
     Indication: SKIN INFECTION
     Dosage: 3000000 UNITS , 3X/DAY
     Route: 042
     Dates: start: 20191121, end: 20191201
  2. DALACIN C [Suspect]
     Active Substance: CLINDAMYCIN
     Indication: LIMB TRAUMATIC AMPUTATION
     Dosage: 600 MG, 3X/DAY
     Route: 042
     Dates: start: 20191124, end: 20191128
  3. SYNTARPEN [Suspect]
     Active Substance: CLOXACILLIN SODIUM
     Indication: OSTEOMYELITIS ACUTE
     Dosage: 1 G, 4X/DAY
     Route: 042
     Dates: start: 20191128, end: 20191201
  4. DALACIN C [Suspect]
     Active Substance: CLINDAMYCIN
     Indication: LOWER LIMB FRACTURE

REACTIONS (3)
  - Vomiting [Recovering/Resolving]
  - Acute kidney injury [Recovering/Resolving]
  - Nausea [Recovering/Resolving]

NARRATIVE: CASE EVENT DATE: 20191129
